FAERS Safety Report 4811863-X (Version None)
Quarter: 2005Q4

REPORT INFORMATION
  Report Type: 
  Country: None (occurrence: None)
  Receive Date: 20051028
  Receipt Date: 20041011
  Transmission Date: 20060501
  Serious: No
  Sender: FDA-Public Use
  Company Number: US-GLAXOSMITHKLINE-A0529338A

PATIENT
  Age: 67 Year
  Sex: Male
  Weight: 99.1 kg

DRUGS (16)
  1. ADVAIR DISKUS 100/50 [Suspect]
     Indication: DRUG USE FOR UNKNOWN INDICATION
     Dosage: 1PUFF TWICE PER DAY
     Route: 055
     Dates: start: 20040925, end: 20041011
  2. TENORMIN [Concomitant]
  3. COLCHICINE [Concomitant]
  4. NORVASC [Concomitant]
  5. PERCOCET [Concomitant]
  6. PREDNISONE [Concomitant]
  7. VIAGRA [Concomitant]
  8. LOPID [Concomitant]
  9. ASTELIN [Concomitant]
  10. HYDRALAZINE [Concomitant]
  11. RYTHMOL [Concomitant]
  12. NOVOLOG [Concomitant]
  13. VALIUM [Concomitant]
  14. LEXAPRO [Concomitant]
  15. DARVOCET [Concomitant]
  16. PREVACID [Concomitant]

REACTIONS (1)
  - POOR QUALITY DRUG ADMINISTERED [None]
